FAERS Safety Report 10422348 (Version 1)
Quarter: 2014Q3

REPORT INFORMATION
  Report Type: Spontaneous
  Country: IT (occurrence: IT)
  Receive Date: 20140901
  Receipt Date: 20140901
  Transmission Date: 20150326
  Serious: Yes (Hospitalization, Other)
  Sender: FDA-Public Use
  Company Number: CHPA2014IT011262

PATIENT
  Age: 84 Year
  Sex: Female

DRUGS (9)
  1. CARDIOASPIRIN [Concomitant]
     Active Substance: ASPIRIN
  2. SEACOR [Concomitant]
     Active Substance: OMEGA-3 FATTY ACIDS
  3. HYDROCHLOROTHIAZIDE\VALSARTAN [Concomitant]
     Active Substance: HYDROCHLOROTHIAZIDE\VALSARTAN
  4. METOPROLOL [Concomitant]
     Active Substance: METOPROLOL
  5. IBUPROFEN. [Suspect]
     Active Substance: IBUPROFEN
     Indication: BACK PAIN
     Dosage: 800 MG, DAILY
     Route: 048
     Dates: start: 20140427, end: 20140430
  6. ANTRA [Concomitant]
     Active Substance: OMEPRAZOLE
  7. LASIX [Concomitant]
     Active Substance: FUROSEMIDE
  8. VASEXTEN [Concomitant]
     Active Substance: BARNIDIPINE
  9. TORVAST [Concomitant]
     Active Substance: ATORVASTATIN

REACTIONS (3)
  - Atrial fibrillation [Recovering/Resolving]
  - Chest pain [Recovering/Resolving]
  - Drug abuse [Recovering/Resolving]

NARRATIVE: CASE EVENT DATE: 20140430
